FAERS Safety Report 6843908-X (Version None)
Quarter: 2010Q3

REPORT INFORMATION
  Report Type: 
  Country: None (occurrence: None)
  Receive Date: 20100715
  Receipt Date: 20100706
  Transmission Date: 20110219
  Serious: Yes (Hospitalization)
  Sender: FDA-Public Use
  Company Number: US-ELI_LILLY_AND_COMPANY-US201007001285

PATIENT
  Sex: Female
  Weight: 92.971 kg

DRUGS (11)
  1. BYETTA [Suspect]
     Indication: TYPE 2 DIABETES MELLITUS
     Dosage: 5 UG, 2/D
     Route: 058
     Dates: start: 20060101, end: 20060101
  2. BYETTA [Suspect]
     Dosage: 10 UG, 2/D
     Route: 058
  3. METFORMIN HCL [Concomitant]
     Indication: TYPE 2 DIABETES MELLITUS
     Dosage: 500 MG, 2/D
     Route: 048
  4. LIPITOR [Concomitant]
     Dosage: 80 MG, DAILY (1/D)
     Route: 048
  5. TRICOR [Concomitant]
     Dosage: 67 MG, DAILY (1/D)
     Route: 048
  6. SYNTHROID [Concomitant]
     Route: 048
  7. CALCIUM [Concomitant]
     Route: 048
  8. MULTI-VITAMINS [Concomitant]
     Dosage: UNK, DAILY (1/D)
     Route: 048
  9. FISH OIL [Concomitant]
     Dosage: UNK, DAILY (1/D)
     Route: 048
  10. LISINOPRIL [Concomitant]
     Dosage: UNK, DAILY (1/D)
     Route: 048
  11. VITAMIN B-12 [Concomitant]
     Dosage: UNK, MONTHLY (1/M)

REACTIONS (7)
  - CHOLECYSTITIS INFECTIVE [None]
  - DRUG DOSE OMISSION [None]
  - DYSGEUSIA [None]
  - GASTRIC DISORDER [None]
  - MALAISE [None]
  - NAUSEA [None]
  - OSTEOARTHRITIS [None]
